FAERS Safety Report 15337632 (Version 4)
Quarter: 2020Q3

REPORT INFORMATION
  Report Type: Other
  Country: CA (occurrence: CA)
  Receive Date: 20180831
  Receipt Date: 20200813
  Transmission Date: 20201102
  Serious: Yes (Other)
  Sender: FDA-Public Use
  Company Number: CA-APOTEX-2018AP019421

PATIENT
  Age: 38 Year
  Sex: Female

DRUGS (21)
  1. HYDROXYCHLOROQUINE [Suspect]
     Active Substance: HYDROXYCHLOROQUINE
     Indication: PRODUCT USED FOR UNKNOWN INDICATION
     Dosage: 5 MG, UNK
     Route: 065
  2. ARAVA [Suspect]
     Active Substance: LEFLUNOMIDE
     Indication: PRODUCT USED FOR UNKNOWN INDICATION
     Dosage: UNK
     Route: 048
  3. METHOTREXATE. [Suspect]
     Active Substance: METHOTREXATE
     Indication: RHEUMATOID ARTHRITIS
     Dosage: 5 MG, UNK
     Route: 065
  4. REMICADE [Suspect]
     Active Substance: INFLIXIMAB
     Indication: PRODUCT USED FOR UNKNOWN INDICATION
     Dosage: UNK
     Route: 042
  5. ACTEMRA [Suspect]
     Active Substance: TOCILIZUMAB
     Indication: PRODUCT USED FOR UNKNOWN INDICATION
     Dosage: UNK
     Route: 065
  6. GOLD [Concomitant]
     Active Substance: GOLD
     Indication: PRODUCT USED FOR UNKNOWN INDICATION
     Dosage: UNK
     Route: 065
  7. HYDROXYCHLOROQUINE [Suspect]
     Active Substance: HYDROXYCHLOROQUINE
     Indication: RHEUMATOID ARTHRITIS
     Dosage: 200 MILLIGRAM, BID
     Route: 048
  8. CIMZIA [Suspect]
     Active Substance: CERTOLIZUMAB PEGOL
     Indication: PRODUCT USED FOR UNKNOWN INDICATION
     Dosage: 200 MG, CYCLICAL
     Route: 058
  9. ORENCIA [Suspect]
     Active Substance: ABATACEPT
     Indication: PRODUCT USED FOR UNKNOWN INDICATION
     Dosage: 750 MG, UNK
     Route: 065
  10. APO?LEFLUNOMIDE [Suspect]
     Active Substance: LEFLUNOMIDE
     Dosage: 5 MILLIGRAM
     Route: 065
  11. HYDROXYCHLOROQUINE [Suspect]
     Active Substance: HYDROXYCHLOROQUINE
     Dosage: 5 MILLIGRAM
     Route: 048
  12. ENBREL [Suspect]
     Active Substance: ETANERCEPT
     Indication: RHEUMATOID ARTHRITIS
     Dosage: 50 MG, UNK
     Route: 065
  13. METHOTREXATE. [Suspect]
     Active Substance: METHOTREXATE
     Dosage: 25 MILLIGRAM, Q.WK.
     Route: 058
  14. LEFLUNOMIDE. [Suspect]
     Active Substance: LEFLUNOMIDE
     Dosage: 10 MG, UNK
     Route: 048
  15. HUMIRA [Suspect]
     Active Substance: ADALIMUMAB
     Indication: PRODUCT USED FOR UNKNOWN INDICATION
     Dosage: 40 MG, CYCLICAL
     Route: 058
  16. SIMPONI [Suspect]
     Active Substance: GOLIMUMAB
     Indication: RHEUMATOID ARTHRITIS
     Dosage: UNK
     Route: 058
  17. LEFLUNOMIDE. [Suspect]
     Active Substance: LEFLUNOMIDE
     Indication: PRODUCT USED FOR UNKNOWN INDICATION
     Dosage: 5 MG, THERAPY DURATION 365
     Route: 065
  18. METHOTREXATE. [Suspect]
     Active Substance: METHOTREXATE
     Indication: PRODUCT USED FOR UNKNOWN INDICATION
     Dosage: 25 MILLIGRAM
     Route: 058
  19. PREDNISONE. [Concomitant]
     Active Substance: PREDNISONE
     Indication: PRODUCT USED FOR UNKNOWN INDICATION
     Dosage: 50 MG, QD
     Route: 042
  20. APO?LEFLUNOMIDE [Suspect]
     Active Substance: LEFLUNOMIDE
     Indication: PRODUCT USED FOR UNKNOWN INDICATION
     Dosage: 10 MILLIGRAM
     Route: 048
  21. XELJANZ [Suspect]
     Active Substance: TOFACITINIB CITRATE
     Indication: PRODUCT USED FOR UNKNOWN INDICATION
     Dosage: 5 MG, BID
     Route: 048

REACTIONS (23)
  - Skin warm [Recovered/Resolved]
  - Diabetes mellitus [Recovered/Resolved]
  - Mobility decreased [Recovered/Resolved]
  - Off label use [Recovered/Resolved]
  - Abdominal discomfort [Recovered/Resolved]
  - Urinary tract infection [Recovered/Resolved]
  - Joint effusion [Recovered/Resolved]
  - Gastrointestinal disorder [Recovered/Resolved]
  - Therapeutic product effect decreased [Recovered/Resolved]
  - Drug ineffective [Recovered/Resolved]
  - Iron deficiency anaemia [Recovered/Resolved]
  - Arthropathy [Recovered/Resolved]
  - Lip ulceration [Recovered/Resolved]
  - Mouth ulceration [Recovered/Resolved]
  - Drug hypersensitivity [Recovered/Resolved]
  - Diarrhoea [Recovered/Resolved]
  - Tuberculin test positive [Recovered/Resolved]
  - Rheumatoid arthritis [Recovered/Resolved]
  - Impaired work ability [Recovered/Resolved]
  - Spinal stenosis [Recovered/Resolved]
  - Crohn^s disease [Recovered/Resolved]
  - Erythema [Recovered/Resolved]
  - Musculoskeletal disorder [Recovered/Resolved]
